FAERS Safety Report 23175369 (Version 1)
Quarter: 2023Q4

REPORT INFORMATION
  Report Type: Report from Study
  Country: US (occurrence: US)
  Receive Date: 20231113
  Receipt Date: 20231113
  Transmission Date: 20240109
  Serious: Yes (Hospitalization)
  Sender: FDA-Public Use
  Company Number: US-ABBVIE-4739242

PATIENT
  Age: 48 Year
  Sex: Female

DRUGS (1)
  1. IMBRUVICA [Suspect]
     Active Substance: IBRUTINIB
     Indication: Chronic lymphocytic leukaemia
     Route: 048
     Dates: start: 20220622

REACTIONS (9)
  - Hospitalisation [Unknown]
  - Cellulitis [Unknown]
  - Memory impairment [Unknown]
  - Nail ridging [Unknown]
  - Onycholysis [Unknown]
  - Heavy menstrual bleeding [Unknown]
  - Dehydration [Unknown]
  - Abscess [Unknown]
  - Joint range of motion decreased [Unknown]

NARRATIVE: CASE EVENT DATE: 20230301
